FAERS Safety Report 11693857 (Version 1)
Quarter: 2015Q4

REPORT INFORMATION
  Report Type: Spontaneous
  Country: US (occurrence: US)
  Receive Date: 20151103
  Receipt Date: 20151103
  Transmission Date: 20160304
  Serious: Yes (Hospitalization, Other)
  Sender: FDA-Public Use
  Company Number: US-IMPAX LABORATORIES, INC-2015-IPXL-01078

PATIENT
  Age: 30 Year
  Sex: Female

DRUGS (1)
  1. BUPROPION HYDROCHLORIDE EXTENDED-RELEASE [Suspect]
     Active Substance: BUPROPION HYDROCHLORIDE
     Indication: DEPRESSION
     Dosage: UNK
     Route: 065

REACTIONS (7)
  - Seizure [Recovered/Resolved]
  - Sinus tachycardia [Recovered/Resolved]
  - Tachycardia [Recovered/Resolved]
  - Delirium [Recovered/Resolved]
  - Electrocardiogram QT prolonged [Not Recovered/Not Resolved]
  - Overdose [Recovered/Resolved]
  - Metabolic acidosis [Recovered/Resolved]
